FAERS Safety Report 7118500-2 (Version None)
Quarter: 2010Q4

REPORT INFORMATION
  Report Type: 
  Country: None (occurrence: None)
  Receive Date: 20101123
  Receipt Date: 20100114
  Transmission Date: 20110411
  Serious: No
  Sender: FDA-Public Use
  Company Number: US-MYLANLABS-2009S1021972

PATIENT
  Age: 60 Year
  Sex: Female

DRUGS (15)
  1. CLONAZEPAM [Suspect]
     Indication: ANXIETY
     Route: 048
     Dates: end: 20091218
  2. LORAZEPAM [Suspect]
     Indication: ANXIETY
     Route: 048
     Dates: start: 20091218, end: 20091224
  3. LORAZEPAM [Suspect]
     Indication: INSOMNIA
     Route: 048
     Dates: start: 20091218, end: 20091224
  4. LORAZEPAM [Suspect]
     Indication: DEPRESSION
     Route: 048
     Dates: start: 20091218, end: 20091224
  5. LORAZEPAM [Suspect]
     Route: 048
     Dates: start: 20091218, end: 20091224
  6. LORAZEPAM [Suspect]
     Route: 048
     Dates: start: 20091218, end: 20091224
  7. LORAZEPAM [Suspect]
     Route: 048
     Dates: start: 20091218, end: 20091224
  8. LORAZEPAM [Suspect]
     Route: 048
     Dates: start: 20091218, end: 20091224
  9. LORAZEPAM [Suspect]
     Route: 048
     Dates: start: 20091218, end: 20091224
  10. LORAZEPAM [Suspect]
     Route: 048
     Dates: start: 20091218, end: 20091224
  11. GLUCOSAMINE [Concomitant]
  12. CHONDROITIN [Concomitant]
  13. VITAMIN E [Concomitant]
  14. BLACK COHOSH /01456801/ [Concomitant]
  15. MULTI-VITAMINS [Concomitant]

REACTIONS (10)
  - DISTURBANCE IN ATTENTION [None]
  - DRUG WITHDRAWAL SYNDROME [None]
  - DYSGRAPHIA [None]
  - INSOMNIA [None]
  - MALAISE [None]
  - MEMORY IMPAIRMENT [None]
  - SPEECH DISORDER [None]
  - TACHYCARDIA [None]
  - TREMOR [None]
  - VISION BLURRED [None]
